FAERS Safety Report 16871733 (Version 2)
Quarter: 2019Q4

REPORT INFORMATION
  Report Type: Spontaneous
  Country: US (occurrence: US)
  Receive Date: 20191001
  Receipt Date: 20191015
  Transmission Date: 20200122
  Serious: Yes (Hospitalization, Other)
  Sender: FDA-Public Use
  Company Number: US-AUROBINDO-AUR-APL-2019-062639

PATIENT
  Age: 54 Year
  Sex: Female

DRUGS (4)
  1. DOCETAXEL. [Suspect]
     Active Substance: DOCETAXEL
     Indication: GASTRIC CANCER STAGE IV
     Dosage: UNK
     Route: 065
  2. FLUOROURACIL. [Suspect]
     Active Substance: FLUOROURACIL
     Indication: GASTRIC CANCER STAGE IV
     Dosage: 2600 MILLIGRAM/SQ. METER OVER 48 HOURS
     Route: 065
  3. LEUCOVORIN. [Suspect]
     Active Substance: LEUCOVORIN
     Indication: GASTRIC CANCER STAGE IV
     Dosage: UNK
     Route: 065
  4. OXALIPLATIN. [Suspect]
     Active Substance: OXALIPLATIN
     Indication: GASTRIC CANCER STAGE IV
     Dosage: UNK
     Route: 065

REACTIONS (10)
  - Blood pressure decreased [Recovered/Resolved]
  - Aphasia [Unknown]
  - Vomiting [Unknown]
  - Brain natriuretic peptide increased [Unknown]
  - Transient ischaemic attack [Unknown]
  - Left ventricular dysfunction [Unknown]
  - Ejection fraction decreased [Recovered/Resolved]
  - Troponin increased [Unknown]
  - Cardiotoxicity [Unknown]
  - Hypokinesia [Unknown]
